FAERS Safety Report 5368601-4 (Version None)
Quarter: 2007Q2

REPORT INFORMATION
  Report Type: 
  Country: None (occurrence: None)
  Receive Date: 20070625
  Receipt Date: 20070612
  Transmission Date: 20071010
  Serious: Yes (Death, Hospitalization)
  Sender: FDA-Public Use
  Company Number: HU-JNJFOC-20070602844

PATIENT
  Sex: Female

DRUGS (9)
  1. TOPAMAX [Suspect]
     Route: 048
  2. TOPAMAX [Suspect]
     Route: 048
  3. TOPAMAX [Suspect]
     Route: 048
  4. TOPAMAX [Suspect]
     Route: 048
  5. TOPAMAX [Suspect]
     Dosage: 50MG IN AM; 100MG IN PM
     Route: 048
  6. TOPAMAX [Suspect]
     Route: 048
  7. TOPAMAX [Suspect]
     Indication: EPILEPSY
     Route: 048
  8. RIVOTRIL [Concomitant]
     Indication: EPILEPSY
  9. CONVULEX [Concomitant]
     Indication: EPILEPSY

REACTIONS (4)
  - ASTHENIA [None]
  - DEHYDRATION [None]
  - EATING DISORDER [None]
  - PULMONARY EMBOLISM [None]
